FAERS Safety Report 5156931-0 (Version None)
Quarter: 2006Q4

REPORT INFORMATION
  Report Type: 
  Country: None (occurrence: None)
  Receive Date: 20061122
  Receipt Date: 20061016
  Transmission Date: 20070319
  Serious: Yes (Hospitalization)
  Sender: FDA-Public Use
  Company Number: PHBS2006JP16179

PATIENT
  Age: 35 Year
  Sex: Female
  Weight: 46 kg

DRUGS (11)
  1. MINOCYCLINE HCL [Suspect]
     Indication: PYREXIA
     Dosage: 100 MG, BID
     Route: 041
     Dates: start: 20060831, end: 20060913
  2. FIRSTCIN [Suspect]
     Indication: PYREXIA
     Dosage: 1 G, BID
     Route: 041
     Dates: start: 20060831, end: 20060913
  3. DALACIN-S [Suspect]
     Indication: PYREXIA
     Dosage: 600 MG, BID
     Route: 041
     Dates: start: 20060914, end: 20060919
  4. CALONAL [Suspect]
     Dosage: 2 DF/DAY
     Route: 048
     Dates: start: 20060831, end: 20060919
  5. SERENACE [Suspect]
     Dosage: 1 DF, BID
     Route: 048
     Dates: start: 20060831, end: 20061002
  6. CONSTAN [Suspect]
     Dosage: 1 DF, BID
     Route: 048
     Dates: start: 20060831, end: 20061002
  7. ARTANE [Suspect]
     Dosage: 1 DF, QD
     Route: 048
     Dates: start: 20060831, end: 20061002
  8. PAXIL [Suspect]
     Dosage: 2 DF, QD
     Route: 048
     Dates: start: 20060831, end: 20061002
  9. NITRAZEPAM [Suspect]
     Dosage: 1 DF/DAY
     Route: 048
     Dates: start: 20060831, end: 20061002
  10. HIRNAMIN [Suspect]
     Dosage: 1 DF, QD
     Route: 047
     Dates: start: 20060831, end: 20061002
  11. TOFRANIL [Suspect]
     Indication: SCHIZOPHRENIA
     Dosage: 2.5 DF, BID
     Route: 048
     Dates: start: 20060831, end: 20061002

REACTIONS (5)
  - BIOPSY SKIN [None]
  - BODY TEMPERATURE INCREASED [None]
  - DRUG HYPERSENSITIVITY [None]
  - HUMAN HERPES VIRUS 6 SEROLOGY POSITIVE [None]
  - RASH GENERALISED [None]
